FAERS Safety Report 9614581 (Version 8)
Quarter: 2014Q3

REPORT INFORMATION
  Report Type: Report from Study
  Country: DK (occurrence: DK)
  Receive Date: 20131011
  Receipt Date: 20140814
  Transmission Date: 20150326
  Serious: Yes (Hospitalization, Disabling, Other)
  Sender: FDA-Public Use
  Company Number: PHHY2013DK113594

PATIENT
  Age: 53 Year
  Sex: Female
  Weight: 65 kg

DRUGS (5)
  1. CEFUROXIME. [Suspect]
     Active Substance: CEFUROXIME
  2. AFINITOR [Suspect]
     Active Substance: EVEROLIMUS
     Indication: BREAST CANCER
     Dosage: 10 MG
     Route: 048
     Dates: start: 20130316, end: 20130825
  3. EXEMESTANE. [Concomitant]
     Active Substance: EXEMESTANE
     Indication: BREAST CANCER
     Dosage: 25 MG, DAILY
     Route: 048
     Dates: start: 20130316, end: 20130913
  4. AFINITOR [Suspect]
     Active Substance: EVEROLIMUS
     Dosage: 5 MG
     Route: 048
     Dates: start: 20130827, end: 20130913
  5. TAMOXIFEN [Concomitant]
     Active Substance: TAMOXIFEN

REACTIONS (14)
  - Bone marrow failure [Recovered/Resolved]
  - Blister [Recovered/Resolved]
  - Epistaxis [Recovered/Resolved]
  - Malignant neoplasm progression [Unknown]
  - Fungal infection [Recovered/Resolved]
  - Anaemia [Recovered/Resolved]
  - Urticaria [Unknown]
  - Platelet count decreased [Recovered/Resolved]
  - Oral mucosal blistering [Recovered/Resolved]
  - Type I hypersensitivity [Unknown]
  - Pneumonia [Recovered/Resolved]
  - Rash pustular [Recovered/Resolved]
  - Metastases to liver [Unknown]
  - Mucosal dryness [Unknown]

NARRATIVE: CASE EVENT DATE: 20130417
